FAERS Safety Report 5803556-7 (Version None)
Quarter: 2008Q2

REPORT INFORMATION
  Report Type: 
  Country: None (occurrence: None)
  Receive Date: 20080630
  Receipt Date: 20080312
  Transmission Date: 20081010
  Serious: No
  Sender: FDA-Public Use
  Company Number: PHEH2006US02582

PATIENT
  Age: 55 Year
  Sex: Female

DRUGS (3)
  1. EXJADE [Suspect]
     Indication: BLOOD IRON INCREASED
     Dosage: 1250 MG, QD; 2000 MG, QD
     Dates: start: 20060101
  2. EXJADE [Suspect]
     Indication: BLOOD IRON INCREASED
     Dosage: 1250 MG, QD; 2000 MG, QD
     Dates: start: 20060201
  3. DESFERAL [Suspect]
     Indication: BLOOD IRON INCREASED
     Dosage: 6000 MG, WEEKLY; 3000 MG, AFTER BLOOD TRANSFUSIONS

REACTIONS (6)
  - BACK PAIN [None]
  - BLOOD GLUCOSE INCREASED [None]
  - FATIGUE [None]
  - NEPHROLITHIASIS [None]
  - RENAL PAIN [None]
  - SERUM FERRITIN INCREASED [None]
